FAERS Safety Report 10552260 (Version 1)
Quarter: 2014Q4

REPORT INFORMATION
  Report Type: Spontaneous
  Country: US (occurrence: None)
  Receive Date: 20141023
  Receipt Date: 20141023
  Transmission Date: 20150529
  Serious: No
  Sender: FDA-Public Use
  Company Number: AP356-00986-SPO-US

PATIENT
  Age: 32 Year
  Sex: Female

DRUGS (1)
  1. BELVIQ [Suspect]
     Active Substance: LORCASERIN HYDROCHLORIDE
     Indication: WEIGHT DECREASED
     Route: 048
     Dates: start: 201405, end: 201405

REACTIONS (4)
  - Feeling jittery [None]
  - Mental impairment [None]
  - Emotional disorder [None]
  - Disturbance in attention [None]

NARRATIVE: CASE EVENT DATE: 201405
